FAERS Safety Report 6719826-4 (Version None)
Quarter: 2010Q2

REPORT INFORMATION
  Report Type: 
  Country: None (occurrence: None)
  Receive Date: 20100511
  Receipt Date: 20100428
  Transmission Date: 20101027
  Serious: Yes (Other)
  Sender: FDA-Public Use
  Company Number: PHHY2010AT27306

PATIENT

DRUGS (2)
  1. ALISKIREN ALI+ [Suspect]
     Dosage: 300/25 MG
     Dates: start: 20090814
  2. DILATREND [Concomitant]
     Dosage: 25 MG, ONCE DAILY
     Dates: start: 20090301

REACTIONS (1)
  - INFARCTION [None]
